FAERS Safety Report 19155000 (Version 11)
Quarter: 2024Q1

REPORT INFORMATION
  Report Type: Spontaneous
  Country: CA (occurrence: CA)
  Receive Date: 20210419
  Receipt Date: 20240301
  Transmission Date: 20240410
  Serious: Yes (Other)
  Sender: FDA-Public Use
  Company Number: CA-PFIZER INC-2020442921

PATIENT
  Age: 46 Year
  Sex: Female
  Weight: 77.11 kg

DRUGS (11)
  1. RUXIENCE [Suspect]
     Active Substance: RITUXIMAB-PVVR
     Indication: Granulomatosis with polyangiitis
     Dosage: 500 MG EVERY (Q) 6 MONTHS X 2 COURSES, 1 DOSE
     Route: 042
     Dates: start: 20201127, end: 20201127
  2. RUXIENCE [Suspect]
     Active Substance: RITUXIMAB-PVVR
     Indication: Microscopic polyangiitis
     Dosage: 500 MG, EVERY 6 MONTH
     Route: 042
     Dates: start: 20211215, end: 20230908
  3. RUXIENCE [Suspect]
     Active Substance: RITUXIMAB-PVVR
     Dosage: 500 MG, EVERY 6 MONTH
     Route: 042
     Dates: start: 20220624
  4. CALCIUM [Concomitant]
     Active Substance: CALCIUM
     Dosage: 1 DF DOSAGE INFORMATION UNKNOWN
     Route: 065
  5. COVID-19 VACCINE [Concomitant]
     Indication: COVID-19 immunisation
     Dosage: DOSE 4, SINGLE
  6. COVID-19 VACCINE [Concomitant]
     Dosage: DOSE 5, SINGLE
  7. CRESTOR [Concomitant]
     Active Substance: ROSUVASTATIN CALCIUM
     Dosage: 1 DF,DOSAGE INFORMATION IS UNKNOWN
     Route: 065
  8. CYCLOBENZAPRINE [Concomitant]
     Active Substance: CYCLOBENZAPRINE
     Dosage: 1 DF, AS NEEDED, DOSAGE INFORMATION UNKNOWN, PRN
     Route: 065
  9. MORPHINE SULFATE [Concomitant]
     Active Substance: MORPHINE SULFATE
     Dosage: 1 DF,DOSAGE INFORMATION IS UNKNOWN
     Route: 065
  10. PROLIA [Concomitant]
     Active Substance: DENOSUMAB
     Dosage: 1 DF,DOSAGE INFORMATION IS UNKNOWN
     Route: 065
  11. CHOLECALCIFEROL [Concomitant]
     Active Substance: CHOLECALCIFEROL
     Dosage: 1 DF,DOSAGE INFORMATION IS UNKNOWN
     Route: 065

REACTIONS (8)
  - Nasal disorder [Unknown]
  - Anaphylactic reaction [Unknown]
  - Nephrolithiasis [Unknown]
  - Post procedural infection [Recovered/Resolved]
  - Off label use [Unknown]
  - Condition aggravated [Unknown]
  - Urinary tract infection [Unknown]
  - Chest discomfort [Unknown]

NARRATIVE: CASE EVENT DATE: 20201127
